FAERS Safety Report 15850390 (Version 3)
Quarter: 2019Q4

REPORT INFORMATION
  Report Type: Spontaneous
  Country: CA (occurrence: CA)
  Receive Date: 20190121
  Receipt Date: 20191125
  Transmission Date: 20200122
  Serious: Yes (Hospitalization)
  Sender: FDA-Public Use
  Company Number: CA-TEVA-2019-CA-999552

PATIENT
  Age: 2 Year
  Sex: Male
  Weight: 12.7 kg

DRUGS (1)
  1. NOVAMOXIN [Suspect]
     Active Substance: AMOXICILLIN
     Indication: OTITIS MEDIA
     Dosage: 15 MILLIGRAM DAILY; MIXED BERRY FLAVOR SUSPENSION
     Route: 065
     Dates: start: 20181205, end: 20181210

REACTIONS (5)
  - Myalgia [Recovered/Resolved]
  - Rash [Recovered/Resolved]
  - Arthralgia [Recovered/Resolved]
  - Swelling [Recovered/Resolved]
  - Serum sickness [Recovered/Resolved]

NARRATIVE: CASE EVENT DATE: 20181214
